FAERS Safety Report 15311170 (Version 1)
Quarter: 2018Q3

REPORT INFORMATION
  Report Type: Spontaneous
  Country: US (occurrence: US)
  Receive Date: 20180823
  Receipt Date: 20180823
  Transmission Date: 20181010
  Serious: Yes (Hospitalization, Other)
  Sender: FDA-Public Use
  Company Number: US-OTSUKA-2018_026687

PATIENT
  Sex: Male

DRUGS (1)
  1. ABILIFY [Suspect]
     Active Substance: ARIPIPRAZOLE
     Indication: BIPOLAR DISORDER
     Dosage: 10?20 MG, QD
     Route: 065
     Dates: start: 200601, end: 201412

REACTIONS (17)
  - Suicide attempt [Unknown]
  - Loss of employment [Unknown]
  - Injury [Unknown]
  - Emotional distress [Unknown]
  - Compulsive sexual behaviour [Recovered/Resolved]
  - Compulsive shopping [Recovered/Resolved]
  - Weight increased [Unknown]
  - Bankruptcy [Unknown]
  - Compulsive hoarding [Recovered/Resolved]
  - Mental disorder [Unknown]
  - Suicidal ideation [Unknown]
  - Divorced [Unknown]
  - Sexual dysfunction [Recovered/Resolved]
  - Eating disorder [Recovered/Resolved]
  - Neuropsychiatric symptoms [Unknown]
  - Gambling disorder [Recovered/Resolved]
  - Economic problem [Unknown]
